FAERS Safety Report 9798576 (Version 3)
Quarter: 2014Q1

REPORT INFORMATION
  Report Type: Report from Study
  Country: US (occurrence: US)
  Receive Date: 20140106
  Receipt Date: 20140206
  Transmission Date: 20141002
  Serious: Yes (Death, Other)
  Sender: FDA-Public Use
  Company Number: US-BAYER-2014-000057

PATIENT
  Age: 59 Year
  Sex: Female

DRUGS (1)
  1. NEXAVAR [Suspect]
     Indication: GASTRIC CANCER
     Dosage: 400 MG, BID
     Route: 048
     Dates: start: 20131226, end: 20131230

REACTIONS (9)
  - Vomiting [Not Recovered/Not Resolved]
  - Aphagia [Not Recovered/Not Resolved]
  - Off label use [None]
  - Anxiety [Not Recovered/Not Resolved]
  - Dry skin [Not Recovered/Not Resolved]
  - Eye pain [Not Recovered/Not Resolved]
  - Vomiting [Not Recovered/Not Resolved]
  - Dehydration [Not Recovered/Not Resolved]
  - Death [Fatal]
